FAERS Safety Report 5564769-5 (Version None)
Quarter: 2007Q4

REPORT INFORMATION
  Report Type: 
  Country: None (occurrence: None)
  Receive Date: 20071218
  Receipt Date: 20071211
  Transmission Date: 20080405
  Serious: Yes (Hospitalization)
  Sender: FDA-Public Use
  Company Number: GB-ROCHE-536429

PATIENT
  Age: 44 Year
  Sex: Female
  Weight: 95 kg

DRUGS (3)
  1. ORLISTAT [Suspect]
     Indication: OBESITY
     Route: 048
     Dates: start: 20071027, end: 20071114
  2. DICLOFENAC [Concomitant]
     Indication: ANALGESIA
     Route: 048
     Dates: start: 20071128
  3. FLOMAX [Concomitant]
     Route: 048
     Dates: start: 20071115

REACTIONS (1)
  - NEPHROLITHIASIS [None]
